FAERS Safety Report 9241748 (Version 1)
Quarter: 2013Q2

REPORT INFORMATION
  Report Type: Spontaneous
  Country: US (occurrence: US)
  Receive Date: 20130419
  Receipt Date: 20130419
  Transmission Date: 20140414
  Serious: Yes (Other)
  Sender: FDA-Public Use
  Company Number: US-SANOFI-AVENTIS-2013SA035523

PATIENT
  Age: 72 Year
  Sex: Male

DRUGS (1)
  1. LOVENOX [Suspect]
     Dates: start: 2006

REACTIONS (2)
  - Platelet count decreased [Unknown]
  - Headache [Unknown]
